FAERS Safety Report 7552671-9 (Version None)
Quarter: 2011Q2

REPORT INFORMATION
  Report Type: 
  Country: None (occurrence: None)
  Receive Date: 20110616
  Receipt Date: 20110607
  Transmission Date: 20111010
  Serious: Yes (Hospitalization, Other)
  Sender: FDA-Public Use
  Company Number: AU-UCBSA-034684

PATIENT
  Sex: Male

DRUGS (5)
  1. VALPROATE SODIUM [Suspect]
  2. KEPPRA [Suspect]
     Indication: CONVULSION
     Dosage: UNKNOWN DOSE
     Dates: end: 20100301
  3. MIDAZOLAM HCL [Suspect]
     Dates: start: 20110101
  4. KEPPRA [Suspect]
     Dosage: 500 MG OM;250 MG ON
     Dates: start: 20110101
  5. KEPPRA [Suspect]
     Dates: start: 20110301, end: 20110425

REACTIONS (9)
  - CONVULSION [None]
  - EUPHORIC MOOD [None]
  - DEPRESSED MOOD [None]
  - TREMOR [None]
  - EYE PAIN [None]
  - VISION BLURRED [None]
  - FEELING ABNORMAL [None]
  - PARAESTHESIA [None]
  - HYPOAESTHESIA [None]
